FAERS Safety Report 6717657-2 (Version None)
Quarter: 2010Q2

REPORT INFORMATION
  Report Type: 
  Country: None (occurrence: None)
  Receive Date: 20100503
  Receipt Date: 20100423
  Transmission Date: 20101027
  Serious: Yes (Hospitalization)
  Sender: FDA-Public Use
  Company Number: 8029448

PATIENT
  Sex: Female
  Weight: 52 kg

DRUGS (9)
  1. CERTOLIZUMAB PEGOL [Suspect]
     Indication: CROHN'S DISEASE
     Dosage: 400 MG 1X/2 WEEKS, SUBCUTANEOUS, 400 MG 1X/2 WEEKS SUBCUTANEOUS
     Route: 058
  2. REMICADE [Suspect]
     Indication: CROHN'S DISEASE
     Dates: start: 20080126
  3. PREDNISONE [Concomitant]
  4. MESALAMINE [Concomitant]
  5. VICODIN [Concomitant]
  6. IMODIUM [Concomitant]
  7. IRON [Concomitant]
  8. ENSURE /00472201/ [Concomitant]
  9. PANTOPRAZOLE [Concomitant]

REACTIONS (12)
  - BLOOD CALCIUM DECREASED [None]
  - BLOOD GLUCOSE INCREASED [None]
  - BLOOD POTASSIUM DECREASED [None]
  - BLOOD UREA DECREASED [None]
  - CONDITION AGGRAVATED [None]
  - CROHN'S DISEASE [None]
  - CYTOMEGALOVIRUS COLITIS [None]
  - HAEMATOCRIT DECREASED [None]
  - MEAN CELL HAEMOGLOBIN CONCENTRATION DECREASED [None]
  - MEAN CELL VOLUME DECREASED [None]
  - NO THERAPEUTIC RESPONSE [None]
  - WHITE BLOOD CELL COUNT INCREASED [None]
